FAERS Safety Report 11835574 (Version 1)
Quarter: 2015Q4

REPORT INFORMATION
  Report Type: Spontaneous
  Country: US (occurrence: None)
  Receive Date: 20151214
  Receipt Date: 20151214
  Transmission Date: 20160305
  Serious: Yes (Disabling, Other)
  Sender: FDA-Public Use
  Company Number: None

PATIENT
  Age: 47 Year
  Sex: Male
  Weight: 108.41 kg

DRUGS (4)
  1. VITAMIN K [Concomitant]
     Active Substance: PHYTONADIONE
  2. METHIMAZOLE 10 MG PAR [Suspect]
     Active Substance: METHIMAZOLE
     Indication: BASEDOW^S DISEASE
     Route: 048
  3. VITAMIN D [Concomitant]
     Active Substance: CHOLECALCIFEROL
  4. GRAPEFRUIT SEED EXTRACT [Concomitant]
     Active Substance: GRAPEFRUIT SEED EXTRACT

REACTIONS (8)
  - Panic attack [None]
  - Lupus-like syndrome [None]
  - Tooth disorder [None]
  - Abdominal distension [None]
  - Adrenal insufficiency [None]
  - Diabetes mellitus [None]
  - Weight increased [None]
  - Systemic candida [None]

NARRATIVE: CASE EVENT DATE: 20130908
